FAERS Safety Report 9002650 (Version 4)
Quarter: 2014Q1

REPORT INFORMATION
  Report Type: Spontaneous
  Country: US (occurrence: US)
  Receive Date: 20130107
  Receipt Date: 20140205
  Transmission Date: 20141002
  Serious: No
  Sender: FDA-Public Use
  Company Number: US-009507513-1301USA001828

PATIENT
  Age: 43 Year
  Sex: Female
  Weight: 68.27 kg

DRUGS (1)
  1. DULERA [Suspect]
     Indication: ASTHMA
     Dosage: 1-2 PUFFS X 2/D
     Route: 055
     Dates: start: 20120410

REACTIONS (4)
  - Dermatitis [Not Recovered/Not Resolved]
  - Rash generalised [Recovering/Resolving]
  - Urticaria [Not Recovered/Not Resolved]
  - Rash [Recovered/Resolved]
